FAERS Safety Report 6692342-4 (Version None)
Quarter: 2010Q2

REPORT INFORMATION
  Report Type: 
  Country: None (occurrence: None)
  Receive Date: 20100419
  Receipt Date: 20100408
  Transmission Date: 20101027
  Serious: Yes (Death)
  Sender: FDA-Public Use
  Company Number: 009419

PATIENT
  Age: 58 Year
  Sex: Male

DRUGS (2)
  1. PLETAL [Suspect]
     Indication: INTERMITTENT CLAUDICATION
     Dosage: 100 MG, BID
     Route: 048
     Dates: start: 20100219, end: 20100304
  2. PLAVIX [Suspect]
     Indication: INTERMITTENT CLAUDICATION

REACTIONS (2)
  - HEADACHE [None]
  - SUDDEN DEATH [None]
